FAERS Safety Report 11157177 (Version 1)
Quarter: 2015Q2

REPORT INFORMATION
  Report Type: Spontaneous
  Country: JP (occurrence: JP)
  Receive Date: 20150602
  Receipt Date: 20150602
  Transmission Date: 20150821
  Serious: Yes (Other)
  Sender: FDA-Public Use
  Company Number: PHJP2015JP005489

PATIENT
  Age: 59 Year
  Sex: Male
  Weight: 71 kg

DRUGS (1)
  1. TASIGNA [Suspect]
     Active Substance: NILOTINIB
     Indication: CHRONIC MYELOID LEUKAEMIA
     Dosage: 300 MG, BID
     Route: 048
     Dates: start: 20150318, end: 20150330

REACTIONS (10)
  - Nausea [Recovered/Resolved]
  - Rash [Unknown]
  - Splenomegaly [Unknown]
  - Jaundice [Unknown]
  - Pruritus [Recovered/Resolved]
  - Aspartate aminotransferase increased [Unknown]
  - Liver disorder [Recovering/Resolving]
  - Alanine aminotransferase increased [Unknown]
  - Blood bilirubin increased [Unknown]
  - Hepatic steatosis [Unknown]

NARRATIVE: CASE EVENT DATE: 20150320
